FAERS Safety Report 6524982-7 (Version None)
Quarter: 2009Q4

REPORT INFORMATION
  Report Type: 
  Country: None (occurrence: None)
  Receive Date: 20091231
  Receipt Date: 20091231
  Transmission Date: 20100525
  Serious: Yes (Life-Threatening)
  Sender: FDA-Public Use
  Company Number: None

PATIENT
  Age: 33 Year
  Sex: Male
  Weight: 100 kg

DRUGS (1)
  1. CLOZAPINE [Suspect]
     Indication: SCHIZOPHRENIA
     Dosage: BY  MOUTH
     Route: 048

REACTIONS (3)
  - ALCOHOL ABUSE [None]
  - PANCREATITIS [None]
  - RESPIRATORY DISTRESS [None]
